FAERS Safety Report 15670646 (Version 2)
Quarter: 2019Q3

REPORT INFORMATION
  Report Type: Spontaneous
  Country: US (occurrence: US)
  Receive Date: 20181129
  Receipt Date: 20190719
  Transmission Date: 20191004
  Serious: No
  Sender: FDA-Public Use
  Company Number: US-MYLANLABS-2018M1087407

PATIENT

DRUGS (1)
  1. CLONIDINE HYDROCHLORIDE TABLETS, USP [Suspect]
     Active Substance: CLONIDINE HYDROCHLORIDE
     Indication: HYPERTENSION
     Dosage: UNK
     Route: 048

REACTIONS (6)
  - Alopecia [Unknown]
  - Oliguria [Recovered/Resolved]
  - Cough [Recovered/Resolved]
  - Dry mouth [Recovered/Resolved]
  - Dry throat [Recovered/Resolved]
  - Madarosis [Not Recovered/Not Resolved]
